FAERS Safety Report 4948583-7 (Version None)
Quarter: 2006Q1

REPORT INFORMATION
  Report Type: 
  Country: None (occurrence: None)
  Receive Date: 20060313
  Receipt Date: 20060301
  Transmission Date: 20060701
  Serious: Yes (Other)
  Sender: FDA-Public Use
  Company Number: 8012287

PATIENT
  Sex: Female

DRUGS (2)
  1. KEPPRA [Suspect]
     Dosage: 1.5 G  2/D  PO
     Route: 048
  2. LYRICA [Concomitant]

REACTIONS (3)
  - COMA HEPATIC [None]
  - FATIGUE [None]
  - OVERDOSE [None]
